FAERS Safety Report 14350657 (Version 1)
Quarter: 2018Q1

REPORT INFORMATION
  Report Type: Spontaneous
  Country: PT (occurrence: PT)
  Receive Date: 20180104
  Receipt Date: 20180104
  Transmission Date: 20180509
  Serious: Yes (Other)
  Sender: FDA-Public Use
  Company Number: PT-MYLANLABS-2017M1081965

PATIENT
  Age: 66 Year
  Sex: Male

DRUGS (2)
  1. ROPIVACAINE [Suspect]
     Active Substance: ROPIVACAINE
     Indication: EPIDURAL ANAESTHESIA
     Dosage: 8 ML OF 0.75%; BOLUS
     Route: 008
  2. ROPIVACAINE [Suspect]
     Active Substance: ROPIVACAINE
     Dosage: 4 ML OF 0.2%; BOLUS
     Route: 008

REACTIONS (3)
  - Radiculopathy [Unknown]
  - Incontinence [Unknown]
  - Paraparesis [Not Recovered/Not Resolved]
